FAERS Safety Report 8443904-5 (Version None)
Quarter: 2012Q2

REPORT INFORMATION
  Report Type: 
  Country: None (occurrence: None)
  Receive Date: 20120618
  Receipt Date: 20120608
  Transmission Date: 20120825
  Serious: Yes (Life-Threatening, Hospitalization, Other)
  Sender: FDA-Public Use
  Company Number: US-BAYER-2011-024129

PATIENT
  Age: 36 Year
  Sex: Female

DRUGS (17)
  1. TRICOR [Concomitant]
     Dosage: 145 MG, UNK
  2. PRILOSEC [Concomitant]
     Indication: GASTROOESOPHAGEAL REFLUX DISEASE
  3. ACTOS [Concomitant]
     Indication: TYPE 2 DIABETES MELLITUS
     Dosage: 15 MG, IN THE MORNING
  4. OXYBUTYNIN [Concomitant]
     Indication: BLADDER DISORDER
     Dosage: 10 MG, UNK
  5. DICLOFENAC SODIUM [Concomitant]
     Indication: ARTHRALGIA
     Dosage: 75 MG AS NEEDED ONCE OR TWICE A DAY
  6. ADIPEX [Concomitant]
  7. REQUIP [Concomitant]
     Indication: RESTLESS LEGS SYNDROME
  8. PLAVIX [Concomitant]
     Dosage: 75 MG, UNK
  9. METFORMIN HCL [Concomitant]
     Indication: TYPE 2 DIABETES MELLITUS
     Dosage: 4 DF, AT BREAKFAST
  10. ROPINIROLE [Concomitant]
     Dosage: 3 MG, UNK
  11. DARVOCET [Concomitant]
     Dosage: 3-4 TIMES A DAY AS NEEDED
  12. ALLEGRA [Concomitant]
     Indication: MULTIPLE ALLERGIES
  13. XANAX [Concomitant]
     Dosage: 0.5 MG, PRN
  14. IBUPROFEN [Concomitant]
  15. DROSPIRENONE AND ETHINYL ESTRADIOL [Suspect]
     Indication: MENSTRUATION IRREGULAR
     Dosage: UNK
     Dates: start: 20090101, end: 20100801
  16. SIMVASTATIN [Concomitant]
     Dosage: 40 MG, UNK
  17. ASPIRIN [Concomitant]

REACTIONS (9)
  - INJURY [None]
  - EMOTIONAL DISTRESS [None]
  - BILIARY DYSKINESIA [None]
  - TRANSIENT ISCHAEMIC ATTACK [None]
  - PAIN [None]
  - GALLBLADDER DISORDER [None]
  - THROMBOSIS [None]
  - GENERAL PHYSICAL HEALTH DETERIORATION [None]
  - ANHEDONIA [None]
